FAERS Safety Report 22721929 (Version 7)
Quarter: 2025Q1

REPORT INFORMATION
  Report Type: Report from Study
  Country: BR (occurrence: BR)
  Receive Date: 20230719
  Receipt Date: 20250318
  Transmission Date: 20250408
  Serious: Yes (Hospitalization, Other)
  Sender: TAKEDA
  Company Number: BR-TAKEDA-2023TUS069445

PATIENT
  Age: 14 Year
  Sex: Female

DRUGS (2)
  1. PONATINIB [Suspect]
     Active Substance: PONATINIB
     Indication: Product used for unknown indication
     Dates: start: 20230712, end: 20230712
  2. RISPERIDONE [Suspect]
     Active Substance: RISPERIDONE
     Indication: Product used for unknown indication
     Dates: start: 20230712, end: 20230712

REACTIONS (14)
  - Hypersensitivity [Recovered/Resolved]
  - Chapped lips [Recovered/Resolved]
  - Overdose [Unknown]
  - Respiratory disorder [Unknown]
  - Suicide attempt [Unknown]
  - Immunodeficiency [Unknown]
  - Hypotonia [Recovered/Resolved]
  - Dizziness [Unknown]
  - Skin exfoliation [Recovered/Resolved]
  - Leukocytosis [Unknown]
  - Erythema [Recovered/Resolved]
  - Thrombocytopenia [Unknown]
  - Diarrhoea [Unknown]
  - Pyrexia [Recovered/Resolved]

NARRATIVE: CASE EVENT DATE: 20230712
